FAERS Safety Report 9141697 (Version 1)
Quarter: 2013Q1

REPORT INFORMATION
  Report Type: Spontaneous
  Country: US (occurrence: US)
  Receive Date: 20130305
  Receipt Date: 20130305
  Transmission Date: 20140127
  Serious: No
  Sender: FDA-Public Use
  Company Number: US-AMGEN-USASP2013009650

PATIENT
  Age: 48 Year
  Sex: Female

DRUGS (1)
  1. ENBREL [Suspect]
     Indication: RHEUMATOID ARTHRITIS
     Dosage: 50 MG, QWK
     Dates: start: 20110905, end: 20130204

REACTIONS (11)
  - Arthralgia [Not Recovered/Not Resolved]
  - Myalgia [Not Recovered/Not Resolved]
  - Pyrexia [Not Recovered/Not Resolved]
  - Vomiting [Not Recovered/Not Resolved]
  - Decreased appetite [Not Recovered/Not Resolved]
  - Eye irritation [Not Recovered/Not Resolved]
  - Chills [Not Recovered/Not Resolved]
  - Adverse event [Recovered/Resolved]
  - Injection site pain [Recovered/Resolved]
  - Artificial crown procedure [Recovered/Resolved]
  - Mobility decreased [Recovered/Resolved]
